FAERS Safety Report 7594895-0 (Version None)
Quarter: 2011Q3

REPORT INFORMATION
  Report Type: 
  Country: None (occurrence: None)
  Receive Date: 20110707
  Receipt Date: 20110624
  Transmission Date: 20111222
  Serious: Yes (Death, Other)
  Sender: FDA-Public Use
  Company Number: GB-ELI_LILLY_AND_COMPANY-GB201106007175

PATIENT
  Age: 46 Year

DRUGS (4)
  1. METHADONE HCL [Concomitant]
  2. VENLAFAXINE [Concomitant]
  3. CLOZAPINE [Concomitant]
  4. OLANZAPINE [Suspect]

REACTIONS (4)
  - PNEUMONIA [None]
  - RESPIRATORY DEPRESSION [None]
  - ACCIDENTAL OVERDOSE [None]
  - TOXICITY TO VARIOUS AGENTS [None]
